FAERS Safety Report 9548040 (Version 1)
Quarter: 2013Q3

REPORT INFORMATION
  Report Type: Spontaneous
  Country: US (occurrence: US)
  Receive Date: 20130924
  Receipt Date: 20130924
  Transmission Date: 20140515
  Serious: No
  Sender: FDA-Public Use
  Company Number: US-PURDUE-USA-2011-0071104

PATIENT
  Sex: Female

DRUGS (3)
  1. MS CONTIN TABLETS [Suspect]
     Indication: FIBROMYALGIA
     Dosage: UNK UNK, UNK
  2. MS CONTIN TABLETS [Suspect]
     Indication: ARTHRALGIA
  3. MS CONTIN TABLETS [Suspect]
     Indication: CHRONIC FATIGUE SYNDROME

REACTIONS (1)
  - Somnolence [Unknown]
